FAERS Safety Report 16280564 (Version 1)
Quarter: 2019Q2

REPORT INFORMATION
  Report Type: Spontaneous
  Country: US (occurrence: US)
  Receive Date: 20190401
  Receipt Date: 20190401
  Transmission Date: 20190711
  Serious: No
  Sender: FDA-Public Use
  Company Number: None

PATIENT
  Age: 31 Year
  Sex: Male

DRUGS (4)
  1. TEMOZOLOMIDE 140MG CAP [Suspect]
     Active Substance: TEMOZOLOMIDE
     Indication: BRAIN NEOPLASM MALIGNANT
     Dates: start: 20190110
  2. KEPPRA [Concomitant]
     Active Substance: LEVETIRACETAM
  3. ONDANSETRON [Concomitant]
     Active Substance: ONDANSETRON
  4. DEPAKOTE [Concomitant]
     Active Substance: DIVALPROEX SODIUM

REACTIONS (3)
  - White blood cell count decreased [None]
  - Haematotoxicity [None]
  - Bone marrow disorder [None]

NARRATIVE: CASE EVENT DATE: 20190305
